FAERS Safety Report 7244183-7 (Version None)
Quarter: 2011Q1

REPORT INFORMATION
  Report Type: 
  Country: None (occurrence: None)
  Receive Date: 20110125
  Receipt Date: 20110123
  Transmission Date: 20110831
  Serious: No
  Sender: FDA-Public Use
  Company Number: US-PFIZER INC-2011015778

PATIENT
  Sex: Male
  Weight: 72.5 kg

DRUGS (1)
  1. ADVIL COLD AND SINUS [Suspect]
     Indication: NASOPHARYNGITIS
     Dosage: UNK
     Route: 048
     Dates: start: 20110122

REACTIONS (5)
  - NERVOUSNESS [None]
  - MUSCLE SPASMS [None]
  - SLEEP DISORDER [None]
  - DRY MOUTH [None]
  - PALPITATIONS [None]
